FAERS Safety Report 7277545-2 (Version None)
Quarter: 2011Q1

REPORT INFORMATION
  Report Type: 
  Country: None (occurrence: None)
  Receive Date: 20110202
  Receipt Date: 20110202
  Transmission Date: 20110831
  Serious: No
  Sender: FDA-Public Use
  Company Number: None

PATIENT
  Age: 62 Year
  Sex: Female
  Weight: 113.3993 kg

DRUGS (1)
  1. SANCTURA [Suspect]
     Indication: HYPERTONIC BLADDER
     Dosage: 1 PILL 2X DAY PO
     Route: 048
     Dates: start: 20100101, end: 20110101

REACTIONS (3)
  - RETINAL TEAR [None]
  - FEELING ABNORMAL [None]
  - DRY EYE [None]
